FAERS Safety Report 8453064-2 (Version None)
Quarter: 2012Q2

REPORT INFORMATION
  Report Type: 
  Country: None (occurrence: None)
  Receive Date: 20120620
  Receipt Date: 20120507
  Transmission Date: 20120825
  Serious: No
  Sender: FDA-Public Use
  Company Number: US-VERTEX PHARMACEUTICALS INC.-AE-2012-006554

PATIENT
  Sex: Male
  Weight: 111.23 kg

DRUGS (11)
  1. INCIVEK [Suspect]
     Indication: HEPATITIS C
     Route: 048
     Dates: start: 20120425
  2. CLONIDINE [Concomitant]
     Indication: HYPERTENSION
     Route: 048
  3. VALIUM [Concomitant]
     Indication: ANXIETY
     Route: 048
  4. MORPHINE [Concomitant]
     Indication: PAIN
  5. XYLOCAINE [Concomitant]
     Indication: PAIN
  6. RIBAVIRIN [Concomitant]
     Indication: HEPATITIS C
     Route: 048
     Dates: start: 20120425
  7. FENTANYL [Concomitant]
     Indication: PAIN
  8. OXYCONTIN [Concomitant]
     Indication: PAIN
     Route: 048
  9. DIPRIVAN [Concomitant]
     Indication: PAIN
  10. PEGASYS [Concomitant]
     Indication: HEPATITIS C
     Route: 058
     Dates: start: 20120425
  11. SEROQUEL [Concomitant]
     Indication: BIPOLAR DISORDER
     Route: 048

REACTIONS (1)
  - INCORRECT DOSE ADMINISTERED [None]
